FAERS Safety Report 5501845-7 (Version None)
Quarter: 2007Q4

REPORT INFORMATION
  Report Type: 
  Country: None (occurrence: None)
  Receive Date: 20071030
  Receipt Date: 20070302
  Transmission Date: 20080405
  Serious: Yes (Other)
  Sender: FDA-Public Use
  Company Number: A0638574A

PATIENT
  Age: 47 Year
  Sex: Female

DRUGS (3)
  1. SEREVENT [Suspect]
     Indication: ASTHMA
     Dosage: 50MCG TWICE PER DAY
     Route: 055
     Dates: start: 20061101, end: 20061215
  2. AEROBID [Concomitant]
  3. ALBUTEROL [Concomitant]

REACTIONS (3)
  - ASTHMA [None]
  - INHALATION THERAPY [None]
  - PHARMACEUTICAL PRODUCT COMPLAINT [None]
